FAERS Safety Report 5340696-3 (Version None)
Quarter: 2007Q2

REPORT INFORMATION
  Report Type: 
  Country: None (occurrence: None)
  Receive Date: 20070531
  Receipt Date: 20070524
  Transmission Date: 20071010
  Serious: Yes (Hospitalization, Other)
  Sender: FDA-Public Use
  Company Number: FR-BOEHRINGER INGELHEIM PHARMACEUTICALS, INC.-2007-BP-07142BP

PATIENT
  Sex: Female
  Weight: 3.2 kg

DRUGS (6)
  1. VIRAMUNE [Suspect]
     Indication: HIV INFECTION
     Route: 064
     Dates: start: 19990909, end: 19990909
  2. INVIRASE [Suspect]
     Indication: HIV INFECTION
     Route: 064
  3. VIDEX [Suspect]
     Indication: DRUG USE FOR UNKNOWN INDICATION
     Route: 064
  4. RETROVIR [Suspect]
     Indication: HIV INFECTION
     Route: 064
  5. NORVIR [Suspect]
     Indication: DRUG USE FOR UNKNOWN INDICATION
     Route: 064
  6. D4T [Suspect]
     Indication: HIV INFECTION
     Route: 064

REACTIONS (11)
  - ABDOMINAL PAIN [None]
  - ANAEMIA [None]
  - FLATULENCE [None]
  - HEPATOMEGALY [None]
  - HYPERLACTACIDAEMIA [None]
  - HYPERTRIGLYCERIDAEMIA [None]
  - HYPOTONIA [None]
  - MALAISE [None]
  - NEUTROPENIA [None]
  - OBESITY [None]
  - SUPRAVENTRICULAR TACHYCARDIA [None]
